FAERS Safety Report 5572247-2 (Version None)
Quarter: 2007Q4

REPORT INFORMATION
  Report Type: 
  Country: None (occurrence: None)
  Receive Date: 20071221
  Receipt Date: 20071212
  Transmission Date: 20080405
  Serious: Yes (Hospitalization)
  Sender: FDA-Public Use
  Company Number: US-PFIZER INC-2007104436

PATIENT

DRUGS (2)
  1. LYRICA [Suspect]
  2. VALTREX [Suspect]

REACTIONS (2)
  - LIVER DISORDER [None]
  - PYREXIA [None]
